FAERS Safety Report 11595445 (Version 1)
Quarter: 2015Q4

REPORT INFORMATION
  Report Type: Report from Study
  Country: US (occurrence: US)
  Receive Date: 20151006
  Receipt Date: 20151006
  Transmission Date: 20160304
  Serious: No
  Sender: FDA-Public Use
  Company Number: PHEH2015US019271

PATIENT
  Sex: Female
  Weight: 126.98 kg

DRUGS (1)
  1. GILENYA [Suspect]
     Active Substance: FINGOLIMOD HYDROCHLORIDE
     Indication: MULTIPLE SCLEROSIS
     Dosage: 0.5 MG, QD
     Route: 048
     Dates: start: 20150812

REACTIONS (5)
  - Blood pressure increased [Unknown]
  - Joint swelling [Recovering/Resolving]
  - Fluid retention [Recovering/Resolving]
  - Confusional state [Recovering/Resolving]
  - Memory impairment [Not Recovered/Not Resolved]
